FAERS Safety Report 7687465-7 (Version None)
Quarter: 2011Q3

REPORT INFORMATION
  Report Type: 
  Country: None (occurrence: None)
  Receive Date: 20110816
  Receipt Date: 20110329
  Transmission Date: 20111222
  Serious: Yes (Hospitalization, Other)
  Sender: FDA-Public Use
  Company Number: ZA-BRISTOL-MYERS SQUIBB COMPANY-13950829

PATIENT
  Age: 45 Year
  Sex: Male

DRUGS (5)
  1. CITALOPRAM HYDROBROMIDE [Concomitant]
     Dates: start: 20070817
  2. DACARBAZINE [Suspect]
     Indication: MALIGNANT MELANOMA
     Dosage: NO OF COURSE=3
     Route: 042
     Dates: start: 20070816, end: 20070927
  3. LANSOPRAZOLE [Concomitant]
     Dates: start: 20071018
  4. IPILIMUMAB [Suspect]
     Indication: MALIGNANT MELANOMA
     Dosage: NO OF COURSE=3
     Route: 042
     Dates: start: 20070816, end: 20070927
  5. ZOPICLONE [Concomitant]
     Dates: start: 20070927

REACTIONS (1)
  - AUTOIMMUNE DISORDER [None]
